FAERS Safety Report 10812418 (Version 1)
Quarter: 2015Q1

REPORT INFORMATION
  Report Type: Spontaneous
  Country: JP (occurrence: JP)
  Receive Date: 20150218
  Receipt Date: 20150218
  Transmission Date: 20150721
  Serious: Yes (Other)
  Sender: FDA-Public Use
  Company Number: JP-ASTRAZENECA-2014SE97830

PATIENT
  Age: 72 Year
  Sex: Male
  Weight: 59 kg

DRUGS (5)
  1. NEXIUM [Suspect]
     Active Substance: ESOMEPRAZOLE MAGNESIUM
     Indication: OESOPHAGEAL ULCER
     Route: 048
     Dates: start: 20141209, end: 20141215
  2. MODACIN [Suspect]
     Active Substance: CEFTAZIDIME
     Indication: PNEUMONIA ASPIRATION
     Route: 041
     Dates: start: 20141205, end: 20141208
  3. SOLDEM 1 [Concomitant]
     Indication: DEHYDRATION
     Route: 041
     Dates: end: 20141215
  4. ARCRANE [Concomitant]
     Indication: OESOPHAGEAL ULCER
     Route: 048
     Dates: start: 20141204, end: 20150205
  5. DEPAKENE [Concomitant]
     Active Substance: VALPROIC ACID
     Indication: EPILEPSY
     Route: 048
     Dates: end: 20150205

REACTIONS (1)
  - Granulocyte count decreased [Recovered/Resolved]

NARRATIVE: CASE EVENT DATE: 20141215
